FAERS Safety Report 12277006 (Version 1)
Quarter: 2016Q2

REPORT INFORMATION
  Report Type: Spontaneous
  Country: US (occurrence: None)
  Receive Date: 20160415
  Receipt Date: 20160415
  Transmission Date: 20160815
  Serious: Yes (Hospitalization, Disabling)
  Sender: FDA-Public Use
  Company Number: None

PATIENT
  Age: 34 Year
  Sex: Female
  Weight: 97.52 kg

DRUGS (1)
  1. ENTYVIO [Suspect]
     Active Substance: VEDOLIZUMAB
     Indication: COLITIS
     Dosage: 2 WEEKS INFUSION

REACTIONS (6)
  - Confusional state [None]
  - Malaise [None]
  - Myelitis transverse [None]
  - Coordination abnormal [None]
  - Rash [None]
  - Dysarthria [None]

NARRATIVE: CASE EVENT DATE: 20151216
